FAERS Safety Report 9313110 (Version 1)
Quarter: 2013Q2

REPORT INFORMATION
  Report Type: Spontaneous
  Country: US (occurrence: US)
  Receive Date: 20130528
  Receipt Date: 20130528
  Transmission Date: 20140414
  Serious: No
  Sender: FDA-Public Use
  Company Number: US-ABBOTT-13P-163-1064867-00

PATIENT
  Age: 78 Year
  Sex: Male
  Weight: 93.07 kg

DRUGS (5)
  1. ANDROGEL [Suspect]
     Indication: BLOOD TESTOSTERONE DECREASED
     Route: 061
     Dates: start: 20130307, end: 20130309
  2. GABAPENTIN [Concomitant]
     Indication: PAIN IN EXTREMITY
  3. OMEPRAZOLE [Concomitant]
     Indication: DYSPEPSIA
  4. LEVOTHYROXINE SODIUM [Concomitant]
     Indication: HYPOTHYROIDISM
  5. IBUPROFEN [Concomitant]
     Indication: BACK INJURY

REACTIONS (1)
  - Diarrhoea [Not Recovered/Not Resolved]
